FAERS Safety Report 16529961 (Version 3)
Quarter: 2020Q4

REPORT INFORMATION
  Report Type: Spontaneous
  Country: US (occurrence: US)
  Receive Date: 20190704
  Receipt Date: 20201005
  Transmission Date: 20210113
  Serious: No
  Sender: FDA-Public Use
  Company Number: US-BIOGEN-2019BI00730221

PATIENT
  Sex: Female

DRUGS (4)
  1. TECFIDERA [Suspect]
     Active Substance: DIMETHYL FUMARATE
     Indication: MULTIPLE SCLEROSIS
     Route: 048
     Dates: start: 20190413
  2. TECFIDERA [Suspect]
     Active Substance: DIMETHYL FUMARATE
     Route: 048
     Dates: start: 20190413
  3. METFORMIN [Concomitant]
     Active Substance: METFORMIN HYDROCHLORIDE
     Route: 065
  4. TECFIDERA [Suspect]
     Active Substance: DIMETHYL FUMARATE
     Route: 048
     Dates: start: 20190412

REACTIONS (25)
  - Pain in extremity [Unknown]
  - Cyst [Unknown]
  - Nausea [Not Recovered/Not Resolved]
  - Feeding disorder [Unknown]
  - Hepatomegaly [Unknown]
  - Tongue discolouration [Not Recovered/Not Resolved]
  - Multiple sclerosis [Unknown]
  - Inappropriate schedule of product administration [Unknown]
  - Sinusitis [Unknown]
  - Dizziness [Unknown]
  - Intervertebral disc degeneration [Not Recovered/Not Resolved]
  - Stress fracture [Unknown]
  - Tendon rupture [Unknown]
  - Arthritis [Unknown]
  - Diarrhoea [Not Recovered/Not Resolved]
  - Erythema [Not Recovered/Not Resolved]
  - Abdominal distension [Not Recovered/Not Resolved]
  - Paraesthesia [Unknown]
  - Fatigue [Unknown]
  - Neck pain [Unknown]
  - Fibromyalgia [Unknown]
  - Dry mouth [Not Recovered/Not Resolved]
  - Vertigo [Unknown]
  - Arthralgia [Unknown]
  - Intervertebral disc protrusion [Unknown]
